FAERS Safety Report 8353423-2 (Version None)
Quarter: 2012Q2

REPORT INFORMATION
  Report Type: 
  Country: None (occurrence: None)
  Receive Date: 20120511
  Receipt Date: 20120123
  Transmission Date: 20120825
  Serious: No
  Sender: FDA-Public Use
  Company Number: US-GLAXOSMITHKLINE-A0862050A

PATIENT
  Age: 56 Year
  Sex: Female

DRUGS (3)
  1. XELODA [Suspect]
     Indication: PRODUCT USED FOR UNKNOWN INDICATION
     Route: 065
     Dates: start: 20100508
  2. TYKERB [Suspect]
     Indication: PRODUCT USED FOR UNKNOWN INDICATION
     Route: 065
     Dates: start: 20100508
  3. TYKERB [Suspect]
     Indication: BREAST CANCER
     Dosage: 1250MG PER DAY

REACTIONS (8)
  - FORMICATION [None]
  - COUGH [None]
  - UPPER RESPIRATORY TRACT INFECTION [None]
  - PRURITUS GENERALISED [None]
  - DRUG INEFFECTIVE [None]
  - FEELING ABNORMAL [None]
  - SINUSITIS [None]
  - TONGUE DISORDER [None]
